FAERS Safety Report 5963393-X (Version None)
Quarter: 2008Q4

REPORT INFORMATION
  Report Type: 
  Country: None (occurrence: None)
  Receive Date: 20081124
  Receipt Date: 20081121
  Transmission Date: 20090506
  Serious: Yes (Hospitalization)
  Sender: FDA-Public Use
  Company Number: B0547301A

PATIENT
  Age: 65 Year
  Sex: Female

DRUGS (4)
  1. REQUIP [Suspect]
     Indication: DRUG USE FOR UNKNOWN INDICATION
     Route: 048
     Dates: start: 20081029, end: 20081101
  2. MADOPAR [Concomitant]
     Route: 048
     Dates: start: 20040801
  3. COMTAN [Concomitant]
     Route: 048
     Dates: start: 20040801
  4. CABASER [Concomitant]
     Route: 048
     Dates: start: 20040801

REACTIONS (3)
  - FALL [None]
  - FOOT FRACTURE [None]
  - TREMOR [None]
